FAERS Safety Report 4380555-6 (Version None)
Quarter: 2004Q2

REPORT INFORMATION
  Report Type: 
  Country: None (occurrence: None)
  Receive Date: 20040618
  Receipt Date: 20020516
  Transmission Date: 20050107
  Serious: Yes (Hospitalization, Other)
  Sender: FDA-Public Use
  Company Number: US-MERCK-0205USA02055

PATIENT
  Age: 76 Year
  Sex: Female
  Weight: 74 kg

DRUGS (10)
  1. ACYCLOVIR [Concomitant]
     Route: 065
     Dates: start: 19991223
  2. ASCORBIC ACID [Concomitant]
     Route: 065
  3. HYDROCHLOROTHIAZIDE AND TRIAMTERENE [Concomitant]
     Route: 065
     Dates: start: 19990520
  4. ADALAT [Concomitant]
     Route: 065
  5. PHENAZOPYRIDINE HYDROCHLORIDE [Concomitant]
     Route: 065
     Dates: start: 19990505
  6. VIOXX [Suspect]
     Indication: ARTHRITIS
     Route: 048
     Dates: start: 19991107, end: 19991209
  7. VITAMIN A [Concomitant]
     Route: 065
  8. VITAMIN B COMPLEX [Concomitant]
     Route: 065
  9. VITAMIN D (UNSPECIFIED) [Concomitant]
     Route: 065
  10. VITAMIN E [Concomitant]
     Route: 065

REACTIONS (16)
  - ANGINA PECTORIS [None]
  - ANGINA UNSTABLE [None]
  - AORTIC VALVE INCOMPETENCE [None]
  - ATRIAL FIBRILLATION [None]
  - CHRONIC OBSTRUCTIVE AIRWAYS DISEASE [None]
  - EMOTIONAL DISTRESS [None]
  - HEADACHE [None]
  - HEART RATE INCREASED [None]
  - HEART RATE IRREGULAR [None]
  - HYPERCHOLESTEROLAEMIA [None]
  - HYPERTENSION [None]
  - HYPERTENSIVE CRISIS [None]
  - LACUNAR INFARCTION [None]
  - MITRAL VALVE INCOMPETENCE [None]
  - TRANSIENT ISCHAEMIC ATTACK [None]
  - TRICUSPID VALVE INCOMPETENCE [None]
